FAERS Safety Report 12922675 (Version 1)
Quarter: 2016Q4

REPORT INFORMATION
  Report Type: Spontaneous
  Country: US (occurrence: US)
  Receive Date: 20161108
  Receipt Date: 20161108
  Transmission Date: 20170207
  Serious: Yes (Hospitalization)
  Sender: FDA-Public Use
  Company Number: None

PATIENT
  Age: 74 Year
  Sex: Male
  Weight: 81.72 kg

DRUGS (14)
  1. PEMBROLIZUMAB. [Suspect]
     Active Substance: PEMBROLIZUMAB
     Indication: LUNG NEOPLASM MALIGNANT
     Dosage: ?          OTHER FREQUENCY:Q 3WEEKS;?
     Dates: start: 20160606
  2. MOMETASONE-FORMOTEROL (DULERA) [Concomitant]
  3. ATENOLOL. [Concomitant]
     Active Substance: ATENOLOL
  4. MAGNESIUM OXIDE. [Concomitant]
     Active Substance: MAGNESIUM OXIDE
  5. COENZYME Q10 [Concomitant]
     Active Substance: UBIDECARENONE
  6. OMEPRAZOLE. [Concomitant]
     Active Substance: OMEPRAZOLE
  7. ALPRAZOLAM. [Concomitant]
     Active Substance: ALPRAZOLAM
  8. NITROGLYCERIN. [Concomitant]
     Active Substance: NITROGLYCERIN
  9. ASPIRIN. [Concomitant]
     Active Substance: ASPIRIN
  10. NYSTATIN. [Concomitant]
     Active Substance: NYSTATIN
  11. PREDNISONE. [Concomitant]
     Active Substance: PREDNISONE
  12. TIOTROPIUM BROMIDE (SPIRIVA HANDIHALER) [Concomitant]
  13. ATORVASTATIN [Concomitant]
     Active Substance: ATORVASTATIN
  14. MAGIC MOUTHWASH [Concomitant]
     Active Substance: DIPHENHYDRAMINE HYDROCHLORIDE\LIDOCAINE HYDROCHLORIDE\NYSTATIN

REACTIONS (1)
  - Pulmonary embolism [None]

NARRATIVE: CASE EVENT DATE: 20161028
